FAERS Safety Report 8543656-4 (Version None)
Quarter: 2012Q3

REPORT INFORMATION
  Report Type: 
  Country: None (occurrence: None)
  Receive Date: 20120717
  Receipt Date: 20120706
  Transmission Date: 20120928
  Serious: Yes (Death, Other)
  Sender: FDA-Public Use
  Company Number: 2012P1048734

PATIENT
  Age: 80 Year
  Sex: Female

DRUGS (4)
  1. OMEPRAZOLE [Concomitant]
  2. CIPROFOLXCIN [Concomitant]
  3. NAPROXEN [Suspect]
     Indication: PYREXIA
  4. VITAMIN K TAB [Concomitant]

REACTIONS (21)
  - ABDOMINAL PAIN UPPER [None]
  - DYSPNOEA [None]
  - HAEMATOCRIT DECREASED [None]
  - TACHYCARDIA [None]
  - NEOPLASM PROGRESSION [None]
  - HAEMODYNAMIC INSTABILITY [None]
  - UPPER GASTROINTESTINAL HAEMORRHAGE [None]
  - SHOCK HAEMORRHAGIC [None]
  - HYPERHIDROSIS [None]
  - CARDIO-RESPIRATORY ARREST [None]
  - MEDICATION ERROR [None]
  - VOMITING [None]
  - BLOOD PRESSURE DECREASED [None]
  - TACHYPNOEA [None]
  - COAGULOPATHY [None]
  - HAEMATOCHEZIA [None]
  - MELAENA [None]
  - GASTRIC ULCER [None]
  - FLUID OVERLOAD [None]
  - AORTIC BRUIT [None]
  - THROMBOSIS [None]
